FAERS Safety Report 23826748 (Version 1)
Quarter: 2024Q2

REPORT INFORMATION
  Report Type: Spontaneous
  Country: JP (occurrence: None)
  Receive Date: 20240507
  Receipt Date: 20240507
  Transmission Date: 20240715
  Serious: Yes (Death, Life-Threatening, Hospitalization, Other)
  Sender: FDA-Public Use
  Company Number: JP-INFO-20240107

PATIENT
  Sex: Female
  Weight: 1.9 kg

DRUGS (10)
  1. TRICLOFOS SODIUM [Concomitant]
     Active Substance: TRICLOFOS SODIUM
     Dosage: PER DOSE, FROM DAY 5
     Route: 048
  2. MORPHINE HYDROCHLORIDE [Concomitant]
     Active Substance: MORPHINE HYDROCHLORIDE
     Indication: Analgesic therapy
     Dosage: PER DOSE, FROM DAY 7
     Route: 048
  3. PAMIDRONATE DISODIUM [Suspect]
     Active Substance: PAMIDRONATE DISODIUM
     Indication: Osteoporosis
     Dosage: ON DAY 14 FOR 4 HOUR
     Route: 042
  4. OXYGEN [Concomitant]
     Active Substance: OXYGEN
     Dosage: VIA HIGH-FLOW NASAL CANNULA
     Route: 045
  5. CALCIUM GLUCONATE HYDRATE [Concomitant]
     Dosage: FROM DAY 10
     Route: 048
  6. ALFACALCIDOL [Concomitant]
     Active Substance: ALFACALCIDOL
     Route: 048
  7. ACETAMINOPHEN [Suspect]
     Active Substance: ACETAMINOPHEN
     Indication: Fracture pain
     Dosage: FROM DAY ZERO
     Route: 048
  8. ACETAMINOPHEN [Suspect]
     Active Substance: ACETAMINOPHEN
     Indication: Fracture pain
     Dosage: FROM DAY 10. FIRST INTRAVENOUS USE AND THEN ORAL USE.
     Route: 042
  9. SODIUM PHOSPHATE, MONOBASIC [Concomitant]
     Active Substance: SODIUM PHOSPHATE, MONOBASIC
     Dosage: DAY 7
     Route: 048
  10. FENTANYL CITRATE [Concomitant]
     Active Substance: FENTANYL CITRATE
     Route: 040

REACTIONS (2)
  - Pulmonary haemorrhage [Fatal]
  - Off label use [Unknown]
